FAERS Safety Report 7268559-7 (Version None)
Quarter: 2011Q1

REPORT INFORMATION
  Report Type: 
  Country: None (occurrence: None)
  Receive Date: 20110201
  Receipt Date: 20110120
  Transmission Date: 20110831
  Serious: Yes (Life-Threatening)
  Sender: FDA-Public Use
  Company Number: JP-ABBOTT-10P-087-0674529-00

PATIENT
  Age: 79 Year
  Sex: Male

DRUGS (2)
  1. LUPRON DEPOT [Suspect]
     Indication: PROSTATE CANCER STAGE I
     Route: 058
     Dates: start: 20071031
  2. BICALUTAMIDE [Concomitant]
     Indication: PROSTATE CANCER STAGE I
     Route: 048
     Dates: start: 20050517, end: 20080806

REACTIONS (1)
  - BILE DUCT CANCER [None]
